FAERS Safety Report 20982312 (Version 1)
Quarter: 2022Q2

REPORT INFORMATION
  Report Type: Spontaneous
  Country: US (occurrence: US)
  Receive Date: 20220620
  Receipt Date: 20220620
  Transmission Date: 20220721
  Serious: No
  Sender: FDA-Public Use
  Company Number: US-PFIZER INC-202200834031

PATIENT
  Age: 80 Year
  Sex: Female
  Weight: 90.72 kg

DRUGS (6)
  1. PAXLOVID [Suspect]
     Active Substance: NIRMATRELVIR\RITONAVIR
     Indication: COVID-19 treatment
     Dosage: 3 DF, 2X/DAY (3 IN THE MORNING AND 3 AT NIGHT-9AM AND 9PM; 6 PILLS A DAY)
  2. MINERALS\VITAMINS [Concomitant]
     Active Substance: MINERALS\VITAMINS
     Indication: Mineral deficiency
     Dosage: UNK, 2X/DAY (IN MORNING AND AT NIGHT)
  3. MINERALS\VITAMINS [Concomitant]
     Active Substance: MINERALS\VITAMINS
     Indication: Hypovitaminosis
  4. MINERALS\VITAMINS [Concomitant]
     Active Substance: MINERALS\VITAMINS
     Indication: Hypovitaminosis
     Dosage: UNK, 2X/DAY (1 IN THE MORNING AND 1 AT NIGHT)
  5. HYDROXYZINE HYDROCHLORIDE [Concomitant]
     Active Substance: HYDROXYZINE HYDROCHLORIDE
     Indication: Pruritus
     Dosage: 10 MG, AS NEEDED
  6. HYDROXYZINE HYDROCHLORIDE [Concomitant]
     Active Substance: HYDROXYZINE HYDROCHLORIDE
     Indication: Feeling of relaxation

REACTIONS (3)
  - Feeling abnormal [Unknown]
  - Loose tooth [Unknown]
  - Tooth disorder [Unknown]
